FAERS Safety Report 17791380 (Version 1)
Quarter: 2020Q3

REPORT INFORMATION
  Report Type: Report from Study
  Country: DE (occurrence: DE)
  Receive Date: 20200515
  Receipt Date: 20200515
  Transmission Date: 20201105
  Serious: Yes (Life-Threatening, Hospitalization, Other)
  Sender: FDA-Public Use
  Company Number: DE-ACCORD-181818

PATIENT
  Age: 70 Year
  Sex: Female
  Weight: 85.7 kg

DRUGS (28)
  1. SALBUTAMOL [Concomitant]
     Active Substance: ALBUTEROL
     Indication: PRODUCT USED FOR UNKNOWN INDICATION
  2. BENDAMUSTINE [Suspect]
     Active Substance: BENDAMUSTINE
     Indication: DIFFUSE LARGE B-CELL LYMPHOMA
     Dosage: 2ND CYCLE
     Route: 065
     Dates: start: 20190403, end: 20190403
  3. RITUXIMAB. [Suspect]
     Active Substance: RITUXIMAB
     Indication: DIFFUSE LARGE B-CELL LYMPHOMA
     Dosage: 3D CYCLE
     Route: 065
     Dates: start: 20190502
  4. RITUXIMAB. [Suspect]
     Active Substance: RITUXIMAB
     Indication: DIFFUSE LARGE B-CELL LYMPHOMA
     Route: 065
     Dates: start: 20191203, end: 20191203
  5. VOMEX [Concomitant]
     Active Substance: DIMENHYDRINATE
  6. METOPROLOL. [Concomitant]
     Active Substance: METOPROLOL
  7. PREGABALIN. [Concomitant]
     Active Substance: PREGABALIN
  8. PANTOPRAZOLE [Concomitant]
     Active Substance: PANTOPRAZOLE
  9. POLATUZUMAB VEDOTIN. [Suspect]
     Active Substance: POLATUZUMAB VEDOTIN
     Indication: DIFFUSE LARGE B-CELL LYMPHOMA
     Dosage: 3RD CYCLE
     Route: 065
     Dates: start: 20190502, end: 20190502
  10. INNOHEP [Concomitant]
     Active Substance: TINZAPARIN SODIUM
     Dosage: 16 000 IU/0.8 ML
     Route: 058
  11. METAMIZOLE SODIUM [Concomitant]
     Active Substance: METAMIZOLE SODIUM
  12. POLATUZUMAB VEDOTIN. [Suspect]
     Active Substance: POLATUZUMAB VEDOTIN
     Indication: DIFFUSE LARGE B-CELL LYMPHOMA
     Dosage: 2ND CYCLE
     Route: 065
     Dates: start: 20190403, end: 20190403
  13. POLATUZUMAB VEDOTIN. [Suspect]
     Active Substance: POLATUZUMAB VEDOTIN
     Indication: DIFFUSE LARGE B-CELL LYMPHOMA
     Dosage: 4TH CYCLE
     Route: 065
     Dates: start: 20190910, end: 20190910
  14. BENDAMUSTINE/BENDAMUSTINE HYDROCHLORIDE [Suspect]
     Active Substance: BENDAMUSTINE HYDROCHLORIDE
     Indication: DIFFUSE LARGE B-CELL LYMPHOMA
     Dosage: 1ST CYCLE
     Route: 065
     Dates: start: 201901, end: 201901
  15. PREGABALIN. [Concomitant]
     Active Substance: PREGABALIN
  16. EDOXABAN [Concomitant]
     Active Substance: EDOXABAN TOSYLATE
  17. RITUXIMAB. [Suspect]
     Active Substance: RITUXIMAB
     Indication: DIFFUSE LARGE B-CELL LYMPHOMA
     Dosage: 2ND CYCLE
     Route: 065
     Dates: start: 20190403, end: 20190403
  18. POLATUZUMAB VEDOTIN. [Suspect]
     Active Substance: POLATUZUMAB VEDOTIN
     Indication: DIFFUSE LARGE B-CELL LYMPHOMA
     Dosage: 1ST CYCLE
     Route: 065
     Dates: start: 201901, end: 201901
  19. POLATUZUMAB VEDOTIN. [Suspect]
     Active Substance: POLATUZUMAB VEDOTIN
     Indication: DIFFUSE LARGE B-CELL LYMPHOMA
     Dosage: 5TH CYCLE
     Route: 065
     Dates: start: 20190911, end: 20190911
  20. OXYCODONE [Concomitant]
     Active Substance: OXYCODONE
  21. AMITRIPTYLINE [Concomitant]
     Active Substance: AMITRIPTYLINE
  22. VALSARTAN. [Concomitant]
     Active Substance: VALSARTAN
  23. AVALOX [Concomitant]
     Active Substance: MOXIFLOXACIN HYDROCHLORIDE
     Dates: start: 20190513
  24. RITUXIMAB. [Suspect]
     Active Substance: RITUXIMAB
     Indication: DIFFUSE LARGE B-CELL LYMPHOMA
     Route: 065
     Dates: start: 201901, end: 201901
  25. RITUXIMAB. [Suspect]
     Active Substance: RITUXIMAB
     Indication: DIFFUSE LARGE B-CELL LYMPHOMA
     Dosage: 4TH CYCLE
     Route: 065
     Dates: start: 20190910, end: 20190910
  26. GABAPENTIN. [Concomitant]
     Active Substance: GABAPENTIN
  27. BENDAMUSTINE [Suspect]
     Active Substance: BENDAMUSTINE
     Indication: DIFFUSE LARGE B-CELL LYMPHOMA
     Dosage: 3RD CYCLE
     Route: 065
     Dates: start: 20190502
  28. BENDAMUSTINE [Suspect]
     Active Substance: BENDAMUSTINE
     Indication: DIFFUSE LARGE B-CELL LYMPHOMA
     Dosage: 4TH CYCLE
     Route: 065
     Dates: start: 20190911

REACTIONS (17)
  - Pneumonia [Recovering/Resolving]
  - Nerve injury [Not Recovered/Not Resolved]
  - Pyrexia [Unknown]
  - Pulmonary embolism [Recovering/Resolving]
  - Diarrhoea [Recovering/Resolving]
  - Otitis media [Recovered/Resolved]
  - Meningioma [Unknown]
  - Parainfluenzae virus infection [Recovering/Resolving]
  - Herpes zoster [Not Recovered/Not Resolved]
  - Dysuria [Recovered/Resolved]
  - Adjustment disorder [Unknown]
  - Asthenia [Not Recovered/Not Resolved]
  - Infection [Unknown]
  - General physical health deterioration [Unknown]
  - Urinary tract infection [Unknown]
  - Decreased appetite [Unknown]
  - Neuralgia [Not Recovered/Not Resolved]

NARRATIVE: CASE EVENT DATE: 20190509
